FAERS Safety Report 5786736-9 (Version None)
Quarter: 2008Q2

REPORT INFORMATION
  Report Type: 
  Country: None (occurrence: None)
  Receive Date: 20080624
  Receipt Date: 20080612
  Transmission Date: 20081010
  Serious: Yes (Other)
  Sender: FDA-Public Use
  Company Number: BR-GENENTECH-263142

PATIENT
  Sex: Female

DRUGS (1)
  1. MABTHERA [Suspect]
     Indication: LYMPHOMA
     Route: 042
     Dates: start: 20080609, end: 20080609

REACTIONS (3)
  - CHEST PAIN [None]
  - CYANOSIS [None]
  - URTICARIA [None]
